FAERS Safety Report 4322916-7 (Version None)
Quarter: 2004Q1

REPORT INFORMATION
  Report Type: 
  Country: None (occurrence: None)
  Receive Date: 20040322
  Receipt Date: 20040220
  Transmission Date: 20041129
  Serious: Yes (Other)
  Sender: FDA-Public Use
  Company Number: 2003126704

PATIENT
  Age: 39 Year
  Sex: Male

DRUGS (1)
  1. VFEND [Suspect]
     Indication: ACUTE PULMONARY HISTOPLASMOSIS
     Dosage: ORAL
     Route: 048
     Dates: start: 20031007, end: 20031203

REACTIONS (2)
  - HEADACHE [None]
  - UNEVALUABLE EVENT [None]
